FAERS Safety Report 17480457 (Version 2)
Quarter: 2020Q1

REPORT INFORMATION
  Report Type: Spontaneous
  Country: US (occurrence: US)
  Receive Date: 20200301
  Receipt Date: 20200327
  Transmission Date: 20200409
  Serious: No
  Sender: FDA-Public Use
  Company Number: US-ASTRAZENECA-2020SE27691

PATIENT
  Sex: Male
  Weight: 104.3 kg

DRUGS (5)
  1. NOVOLOG [Concomitant]
     Active Substance: INSULIN ASPART
  2. TRACEBA [Concomitant]
  3. PLAVIX [Concomitant]
     Active Substance: CLOPIDOGREL BISULFATE
  4. BYDUREON BCISE [Suspect]
     Active Substance: EXENATIDE
     Indication: TYPE 1 DIABETES MELLITUS
     Route: 058
     Dates: start: 201909
  5. METFORMIN [Concomitant]
     Active Substance: METFORMIN HYDROCHLORIDE

REACTIONS (8)
  - Product dose omission [Unknown]
  - Wrong technique in device usage process [Unknown]
  - Drug delivery system malfunction [Unknown]
  - Injection site pain [Unknown]
  - Off label use [Not Recovered/Not Resolved]
  - Intentional product misuse [Unknown]
  - Injection site mass [Unknown]
  - Incorrect dose administered by device [Unknown]
